FAERS Safety Report 8578572-5 (Version None)
Quarter: 2012Q3

REPORT INFORMATION
  Report Type: 
  Country: None (occurrence: None)
  Receive Date: 20120726
  Receipt Date: 20120711
  Transmission Date: 20120928
  Serious: Yes (Hospitalization)
  Sender: FDA-Public Use
  Company Number: 2012SGN00196

PATIENT
  Age: 28 Year
  Sex: Female

DRUGS (4)
  1. BRENTUXIMAB VEDOTIN (BRENTUXIMAB VEDOTIN) INJECTION [Suspect]
     Indication: HODGKIN'S DISEASE
     Dosage: 103 MG, QCYCLE, INTRAVENOUS
     Route: 042
     Dates: start: 20120228, end: 20120410
  2. CARBOPLATIN [Suspect]
     Indication: HODGKIN'S DISEASE
     Dosage: 750 MG, QCYCLE
     Dates: start: 20120418, end: 20120511
  3. ETOPOSIDE [Suspect]
     Indication: HODGKIN'S DISEASE
     Dosage: 400 MG, CYCLE
     Dates: start: 20120418, end: 20120511
  4. IFOSFAMIDE [Suspect]
     Indication: HODGKIN'S DISEASE
     Dosage: 10000 MG, QCYCLE
     Dates: start: 20120418, end: 20120511

REACTIONS (7)
  - NAUSEA [None]
  - DIARRHOEA [None]
  - FEBRILE NEUTROPENIA [None]
  - BONE PAIN [None]
  - CHILLS [None]
  - PANCYTOPENIA [None]
  - VOMITING [None]
